FAERS Safety Report 8369636-X (Version None)
Quarter: 2012Q2

REPORT INFORMATION
  Report Type: 
  Country: None (occurrence: None)
  Receive Date: 20120518
  Receipt Date: 20120515
  Transmission Date: 20120825
  Serious: Yes (Hospitalization)
  Sender: FDA-Public Use
  Company Number: PHFR2012GB002979

PATIENT
  Age: 83 Year
  Sex: Female
  Weight: 34.92 kg

DRUGS (2)
  1. FUROSEMIDE [Concomitant]
     Dosage: UNK UKN, UNK
  2. ZOLEDRONIC ACID [Suspect]
     Indication: OSTEOPOROSIS
     Dosage: 4 MG, UNK
     Route: 042
     Dates: start: 20120423, end: 20120503

REACTIONS (1)
  - MYOPATHY [None]
